FAERS Safety Report 5117850-9 (Version None)
Quarter: 2006Q3

REPORT INFORMATION
  Report Type: 
  Country: None (occurrence: None)
  Receive Date: 20060926
  Receipt Date: 20060914
  Transmission Date: 20061208
  Serious: Yes (Other)
  Sender: FDA-Public Use
  Company Number: TAP2006Q01564

PATIENT
  Age: 61 Year
  Sex: Male

DRUGS (3)
  1. LUPRON DEPOT-4 [Suspect]
     Indication: PROSTATE CANCER
     Dosage: 30 MG, 1 IN 4 M, INTRAMUSCULAR
     Route: 030
     Dates: start: 20040904
  2. INSULIN (INSULIN) [Concomitant]
  3. LACTULOSE SYRUP (LACTULOSE) [Concomitant]

REACTIONS (2)
  - HOT FLUSH [None]
  - THROAT CANCER [None]
